FAERS Safety Report 8459969-0 (Version None)
Quarter: 2012Q2

REPORT INFORMATION
  Report Type: 
  Country: None (occurrence: None)
  Receive Date: 20120622
  Receipt Date: 20120619
  Transmission Date: 20120825
  Serious: Yes (Life-Threatening, Hospitalization, Other)
  Sender: FDA-Public Use
  Company Number: PHHO2012NL006740

PATIENT
  Sex: Male
  Weight: 74 kg

DRUGS (4)
  1. ENALAPRIL MALEATE [Suspect]
     Indication: CARDIAC FAILURE
     Dosage: 20 MG, BID
     Route: 048
     Dates: start: 20120418, end: 20120508
  2. NO TREATMENT RECEIVED [Suspect]
     Indication: CARDIAC FAILURE
     Dosage: NO TREATMENT
  3. ALISKIREN [Suspect]
     Indication: CARDIAC FAILURE
     Dosage: 150 MG, QD
     Route: 048
     Dates: start: 20120502, end: 20120508
  4. SOTALOL HYDROCHLORIDE [Concomitant]
     Indication: CARDIOMYOPATHY
     Dosage: 160 MG, BID
     Route: 048
     Dates: start: 20030207, end: 20120428

REACTIONS (3)
  - CARDIAC FAILURE [None]
  - VENTRICULAR TACHYCARDIA [None]
  - RENAL FAILURE [None]
